FAERS Safety Report 7879353-8 (Version None)
Quarter: 2011Q4

REPORT INFORMATION
  Report Type: 
  Country: None (occurrence: None)
  Receive Date: 20111101
  Receipt Date: 20111020
  Transmission Date: 20120403
  Serious: Yes (Hospitalization)
  Sender: FDA-Public Use
  Company Number: US-BAYER-2011-019505

PATIENT
  Age: 36 Year
  Sex: Female

DRUGS (7)
  1. YASMIN [Suspect]
     Indication: PREMENSTRUAL SYNDROME
  2. LYRICA [Concomitant]
     Dosage: 150 MG, UNK
     Route: 048
  3. YAZ [Suspect]
     Indication: ACNE
     Dosage: UNK
     Route: 048
     Dates: start: 20071001, end: 20080317
  4. YASMIN [Suspect]
     Indication: ACNE
     Dosage: UNK
     Route: 048
     Dates: start: 20050801, end: 20060301
  5. LEXAPRO [Concomitant]
     Dosage: 10 MG, UNK
  6. YAZ [Suspect]
     Indication: PREMENSTRUAL SYNDROME
  7. ALLEGRA [Concomitant]
     Route: 048

REACTIONS (8)
  - INJURY [None]
  - GENERAL PHYSICAL HEALTH DETERIORATION [None]
  - PULMONARY EMBOLISM [None]
  - ANXIETY [None]
  - DEEP VEIN THROMBOSIS [None]
  - EMOTIONAL DISTRESS [None]
  - PAIN [None]
  - PHYSICAL DISABILITY [None]
